FAERS Safety Report 10241716 (Version 1)
Quarter: 2014Q2

REPORT INFORMATION
  Report Type: Spontaneous
  Country: US (occurrence: US)
  Receive Date: 20140617
  Receipt Date: 20140617
  Transmission Date: 20141212
  Serious: No
  Sender: FDA-Public Use
  Company Number: US-B.I. PHARMACEUTICALS,INC./RIDGEFIELD-2014-BI-25735BP

PATIENT
  Age: 35 Year
  Sex: Male
  Weight: 86 kg

DRUGS (4)
  1. ZANTAC 150 (RANITIDINE HYDROCHLORIDE) [Suspect]
     Indication: DYSPEPSIA
     Dosage: 150 MG
     Route: 048
     Dates: start: 201405
  2. PEPCID [Concomitant]
     Indication: DYSPEPSIA
     Dosage: FORMULATION:CAPLET
     Route: 048
     Dates: start: 20140605
  3. SYNTHROID [Concomitant]
     Indication: THYROIDECTOMY
     Dosage: 200 MCG
     Route: 048
     Dates: start: 2006
  4. SYNTHROID [Concomitant]
     Dosage: 400 MCG
     Route: 048

REACTIONS (1)
  - Urine amphetamine positive [Not Recovered/Not Resolved]
